FAERS Safety Report 23560598 (Version 1)
Quarter: 2024Q1

REPORT INFORMATION
  Report Type: Spontaneous
  Country: US (occurrence: US)
  Receive Date: 20240223
  Receipt Date: 20240223
  Transmission Date: 20240410
  Serious: No
  Sender: FDA-Public Use
  Company Number: US-ABBVIE-5646531

PATIENT
  Sex: Female

DRUGS (1)
  1. BOTOX [Suspect]
     Active Substance: ONABOTULINUMTOXINA
     Indication: Migraine
     Dosage: TIME INTERVAL: AS NECESSARY
     Route: 030
     Dates: start: 20240214, end: 20240214

REACTIONS (5)
  - Tachypnoea [Unknown]
  - Fatigue [Unknown]
  - Hypertension [Unknown]
  - Peripheral swelling [Unknown]
  - Cyanosis [Unknown]

NARRATIVE: CASE EVENT DATE: 20240214
